FAERS Safety Report 4355125-6 (Version None)
Quarter: 2004Q2

REPORT INFORMATION
  Report Type: 
  Country: None (occurrence: None)
  Receive Date: 20040504
  Receipt Date: 20040420
  Transmission Date: 20050107
  Serious: Yes (Hospitalization, Other)
  Sender: FDA-Public Use
  Company Number: GBR-2004-0001028

PATIENT
  Age: 80 Year
  Sex: Male

DRUGS (3)
  1. OXYCONTIN [Suspect]
     Indication: MUSCULOSKELETAL PAIN
     Dosage: 40 MG , DAILY, ORAL
     Route: 048
     Dates: start: 20040323, end: 20040405
  2. AMITRIPTYLINE HYDROCHLORIDE [Suspect]
     Indication: MUSCULOSKELETAL PAIN
     Dosage: 5 DROP , DAILY, ORAL
     Route: 048
     Dates: start: 20040323, end: 20040405
  3. VIOXX [Suspect]
     Indication: MUSCULOSKELETAL PAIN
     Dosage: ORAL
     Route: 048
     Dates: start: 20040323, end: 20040405

REACTIONS (5)
  - CONVULSION [None]
  - DELUSIONAL DISORDER, PERSECUTORY TYPE [None]
  - DISORIENTATION [None]
  - HALLUCINATION [None]
  - MENTAL DISORDER [None]
